FAERS Safety Report 15992185 (Version 4)
Quarter: 2019Q1

REPORT INFORMATION
  Report Type: Spontaneous
  Country: BR (occurrence: BR)
  Receive Date: 20190221
  Receipt Date: 20190322
  Transmission Date: 20190418
  Serious: Yes (Hospitalization, Other)
  Sender: FDA-Public Use
  Company Number: PHHY2019BR039942

PATIENT
  Sex: Male
  Weight: 11.67 kg

DRUGS (2)
  1. IBUPROFEN. [Suspect]
     Active Substance: IBUPROFEN
     Indication: PRODUCT USED FOR UNKNOWN INDICATION
     Dosage: 12 GTT, Q6H
     Route: 065
  2. TOBREX [Suspect]
     Active Substance: TOBRAMYCIN
     Indication: CONJUNCTIVITIS BACTERIAL
     Dosage: 2 GTT, Q3H
     Route: 047
     Dates: start: 20181229

REACTIONS (12)
  - Injury [Unknown]
  - Blindness unilateral [Not Recovered/Not Resolved]
  - Infective keratitis [Unknown]
  - Corneal perforation [Unknown]
  - Eye oedema [Unknown]
  - Corneal exfoliation [Unknown]
  - Herpes ophthalmic [Unknown]
  - Anterior chamber disorder [Unknown]
  - Ulcerative keratitis [Not Recovered/Not Resolved]
  - Eye discharge [Unknown]
  - Product residue present [Not Recovered/Not Resolved]
  - Product quality issue [Unknown]
